FAERS Safety Report 10732819 (Version 2)
Quarter: 2015Q2

REPORT INFORMATION
  Report Type: Spontaneous
  Country: FR (occurrence: None)
  Receive Date: 20150120
  Receipt Date: 20150423
  Transmission Date: 20150821
  Serious: Yes (Disabling)
  Sender: FDA-Public Use
  Company Number: 2699102

PATIENT
  Age: 15 Year
  Sex: Male

DRUGS (9)
  1. CYTARABINE. [Suspect]
     Active Substance: CYTARABINE
     Indication: ACUTE LYMPHOCYTIC LEUKAEMIA
     Dosage: 30 MG (CYCLICAL) INTRATHECAL
     Route: 037
     Dates: start: 20140926, end: 20141103
  2. VINCRISTINE SULFATE. [Suspect]
     Active Substance: VINCRISTINE SULFATE
     Indication: ACUTE LYMPHOCYTIC LEUKAEMIA
     Dosage: CYCLICAL, INTRAVENOUS
     Route: 042
     Dates: start: 20140923, end: 20141016
  3. NELARABINE [Suspect]
     Active Substance: NELARABINE
     Indication: ACUTE LYMPHOCYTIC LEUKAEMIA
     Dosage: CYCLICAL INTRAVENOUS
     Route: 042
     Dates: start: 20141024, end: 20141028
  4. CYCLOPHOSPHAMIDE. [Suspect]
     Active Substance: CYCLOPHOSPHAMIDE
     Indication: ACUTE LYMPHOCYTIC LEUKAEMIA
     Dosage: CYCLICAL INTRAVENOUS
     Route: 042
     Dates: start: 20140925, end: 20141026
  5. METHYLPREDNISOLONE. [Suspect]
     Active Substance: METHYLPREDNISOLONE
     Indication: ACUTE LYMPHOCYTIC LEUKAEMIA
     Dosage: 20 MG (CYCLICAL) INTRATHECAL
     Route: 037
     Dates: start: 20140926, end: 20141103
  6. VP-16 [Suspect]
     Active Substance: ETOPOSIDE
     Indication: ACUTE LYMPHOCYTIC LEUKAEMIA
     Dosage: CYCLICAL INTRAVENOUS
     Route: 042
     Dates: start: 20141025, end: 20141028
  7. METHOTREXATE [Suspect]
     Active Substance: METHOTREXATE
     Indication: ACUTE LYMPHOCYTIC LEUKAEMIA
     Dosage: 15 MG (CYCLICAL) INTRATHECAL
     Route: 037
     Dates: start: 20140920, end: 20141103
  8. ERWINASE [Suspect]
     Active Substance: ASPARAGINASE ERWINIA CHRYSANTHEMI
     Indication: ACUTE LYMPHOCYTIC LEUKAEMIA
     Dosage: CYCLICAL INTRAVENOUS
     Route: 042
     Dates: start: 20140926, end: 20141017
  9. IMATINIB [Suspect]
     Active Substance: IMATINIB
     Indication: ACUTE LYMPHOCYTIC LEUKAEMIA
     Route: 048
     Dates: start: 20141105

REACTIONS (9)
  - Cough [None]
  - Asphyxia [None]
  - Neuralgia [None]
  - Dyspnoea [None]
  - Demyelination [None]
  - No therapeutic response [None]
  - Polyneuropathy [None]
  - Quadriplegia [None]
  - Chest discomfort [None]

NARRATIVE: CASE EVENT DATE: 20141107
